FAERS Safety Report 14428816 (Version 1)
Quarter: 2018Q1

REPORT INFORMATION
  Report Type: Report from Study
  Country: US (occurrence: US)
  Receive Date: 20180123
  Receipt Date: 20180123
  Transmission Date: 20180509
  Serious: No
  Sender: FDA-Public Use
  Company Number: US-AMGEN-USASL2017169471

PATIENT
  Age: 62 Year
  Sex: Female

DRUGS (3)
  1. REPATHA [Suspect]
     Active Substance: EVOLOCUMAB
     Indication: HYPERCHOLESTEROLAEMIA
     Dosage: 140 MG, Q2WK
     Route: 065
  2. GABAPENTIN. [Concomitant]
     Active Substance: GABAPENTIN
     Dosage: 100 MG, TID
  3. GABAPENTIN. [Concomitant]
     Active Substance: GABAPENTIN
     Dosage: 300 MG, TID

REACTIONS (6)
  - Rash papular [Recovering/Resolving]
  - Pain [Unknown]
  - Rash erythematous [Recovering/Resolving]
  - Pain in jaw [Not Recovered/Not Resolved]
  - Neck pain [Unknown]
  - Rhinorrhoea [Not Recovered/Not Resolved]
